FAERS Safety Report 24380012 (Version 5)
Quarter: 2025Q3

REPORT INFORMATION
  Report Type: Report from Study
  Country: US (occurrence: US)
  Receive Date: 20240930
  Receipt Date: 20250930
  Transmission Date: 20251020
  Serious: Yes (Other)
  Sender: SUNOVION
  Company Number: US-SUMITOMO PHARMA SWITZERLAND GMBH-2024SPA000769

PATIENT
  Age: 84 Year
  Sex: Male

DRUGS (23)
  1. ORGOVYX [Suspect]
     Active Substance: RELUGOLIX
     Indication: Prostate cancer
     Dosage: 360 MG, SINGLE
     Route: 048
     Dates: start: 20240717, end: 20240717
  2. ORGOVYX [Suspect]
     Active Substance: RELUGOLIX
     Dosage: 120 MG, QD
     Route: 048
     Dates: start: 20240718
  3. ASPIRIN [Concomitant]
     Active Substance: ASPIRIN
  4. JARDIANCE [Concomitant]
     Active Substance: EMPAGLIFLOZIN
  5. LASIX [Concomitant]
     Active Substance: FUROSEMIDE
  6. LISINOPRIL [Concomitant]
     Active Substance: LISINOPRIL
  7. MEGESTROL ACETATE [Concomitant]
     Active Substance: MEGESTROL ACETATE
  8. METOPROLOL SUCCINATE [Concomitant]
     Active Substance: METOPROLOL SUCCINATE
  9. OMEPRAZOLE [Concomitant]
     Active Substance: OMEPRAZOLE
  10. PROMETHAZINE [Concomitant]
     Active Substance: PROMETHAZINE HYDROCHLORIDE
  11. TRAZODONE HCL [Concomitant]
     Active Substance: TRAZODONE HYDROCHLORIDE
  12. ELIQUIS [Concomitant]
     Active Substance: APIXABAN
  13. ERGOCALCIFEROL [Concomitant]
     Active Substance: ERGOCALCIFEROL
  14. FENOFIBRATE [Concomitant]
     Active Substance: FENOFIBRATE
  15. FLOMAX [Concomitant]
     Active Substance: TAMSULOSIN HYDROCHLORIDE
  16. HYDRALAZINE [Concomitant]
     Active Substance: HYDRALAZINE HYDROCHLORIDE
  17. DOCUSATE SODIUM [Concomitant]
     Active Substance: DOCUSATE SODIUM
  18. CEPHALEXIN [Concomitant]
     Active Substance: CEPHALEXIN
  19. ACETAMINOPHEN\HYDROCODONE [Concomitant]
     Active Substance: ACETAMINOPHEN\HYDROCODONE
  20. POTASSIUM [Concomitant]
     Active Substance: POTASSIUM
  21. ZENPEP [Concomitant]
     Active Substance: PANCRELIPASE AMYLASE\PANCRELIPASE LIPASE\PANCRELIPASE PROTEASE
  22. FUROSEMIDE [Concomitant]
     Active Substance: FUROSEMIDE
  23. SOLIFENACIN [Concomitant]
     Active Substance: SOLIFENACIN

REACTIONS (4)
  - Pancreatitis [Unknown]
  - Pollakiuria [Unknown]
  - Hot flush [Unknown]
  - Constipation [Unknown]
